FAERS Safety Report 10182059 (Version 1)
Quarter: 2014Q2

REPORT INFORMATION
  Report Type: Spontaneous
  Country: AT (occurrence: AT)
  Receive Date: 20140519
  Receipt Date: 20140519
  Transmission Date: 20141212
  Serious: Yes (Other)
  Sender: FDA-Public Use
  Company Number: AT-BRISTOL-MYERS SQUIBB COMPANY-20726097

PATIENT
  Age: 56 Year
  Sex: Male

DRUGS (2)
  1. FORXIGA [Suspect]
  2. METFORMIN HCL [Suspect]

REACTIONS (2)
  - Arrhythmia [Unknown]
  - Cardiovascular disorder [Unknown]
